FAERS Safety Report 10013646 (Version 1)
Quarter: 2014Q1

REPORT INFORMATION
  Report Type: Spontaneous
  Country: US (occurrence: US)
  Receive Date: 20140315
  Receipt Date: 20140315
  Transmission Date: 20141002
  Serious: No
  Sender: FDA-Public Use
  Company Number: US-B.I. PHARMACEUTICALS,INC./RIDGEFIELD-2014-BI-09878BP

PATIENT
  Sex: Female
  Weight: 73 kg

DRUGS (1)
  1. SPIRIVA [Suspect]
     Indication: EMPHYSEMA
     Dosage: 18 MCG
     Route: 055
     Dates: start: 2011

REACTIONS (4)
  - Cataract [Recovered/Resolved]
  - Cataract [Recovered/Resolved]
  - Dyspnoea [Unknown]
  - Overdose [Not Recovered/Not Resolved]
